FAERS Safety Report 10979356 (Version 1)
Quarter: 2015Q2

REPORT INFORMATION
  Report Type: Spontaneous
  Country: US (occurrence: US)
  Receive Date: 20150402
  Receipt Date: 20150402
  Transmission Date: 20150821
  Serious: No
  Sender: FDA-Public Use
  Company Number: US-BAYER-2015-091046

PATIENT
  Age: 73 Year
  Sex: Male
  Weight: 95 kg

DRUGS (4)
  1. VITAMIN C [Concomitant]
     Active Substance: ASCORBIC ACID
     Dosage: UNK
  2. ALEVE [Suspect]
     Active Substance: NAPROXEN SODIUM
     Indication: ANALGESIC THERAPY
     Dosage: 1 DF, PRN
     Route: 048
     Dates: start: 2014
  3. TUMERIC [Concomitant]
     Dosage: UNK
  4. GARLIC. [Concomitant]
     Active Substance: GARLIC
     Dosage: UNK

REACTIONS (1)
  - Wrong technique in drug usage process [Unknown]
